FAERS Safety Report 17328865 (Version 1)
Quarter: 2020Q1

REPORT INFORMATION
  Report Type: Spontaneous
  Country: US (occurrence: US)
  Receive Date: 20200110
  Receipt Date: 20200110
  Transmission Date: 20200409
  Serious: Yes (Hospitalization)
  Sender: FDA-Public Use
  Company Number: None

PATIENT
  Sex: Female
  Weight: 56.6 kg

DRUGS (4)
  1. OVARIAN EPITHELIAL CANCER [Concomitant]
  2. TAXOL [Suspect]
     Active Substance: PACLITAXEL
  3. CARBOPLATIN (241240) [Suspect]
     Active Substance: CARBOPLATIN
     Dates: end: 20191122
  4. A FIB, PNEUMONIA [Concomitant]

REACTIONS (6)
  - Haemoglobin decreased [None]
  - Dyspnoea [None]
  - Product dose omission [None]
  - Cardiac failure congestive [None]
  - Neutrophil count decreased [None]
  - Pyrexia [None]

NARRATIVE: CASE EVENT DATE: 20191206
